FAERS Safety Report 6508760-0 (Version None)
Quarter: 2009Q4

REPORT INFORMATION
  Report Type: 
  Country: None (occurrence: None)
  Receive Date: 20091221
  Receipt Date: 20091216
  Transmission Date: 20100525
  Serious: Yes (Hospitalization)
  Sender: FDA-Public Use
  Company Number: DE-ABBOTT-09P-062-0614833-00

PATIENT
  Sex: Female
  Weight: 53 kg

DRUGS (2)
  1. HUMIRA [Suspect]
     Indication: CROHN'S DISEASE
     Route: 058
     Dates: start: 20070530, end: 20090420
  2. AZATHIOPRIN/6-MP [Concomitant]
     Indication: DRUG USE FOR UNKNOWN INDICATION
     Dosage: 2-2.5MG PER KG BODY WEIGHT

REACTIONS (2)
  - FEMALE GENITAL TRACT FISTULA [None]
  - ILEUS [None]
